FAERS Safety Report 15946650 (Version 1)
Quarter: 2019Q1

REPORT INFORMATION
  Report Type: Spontaneous
  Country: US (occurrence: US)
  Receive Date: 20190211
  Receipt Date: 20190211
  Transmission Date: 20190417
  Serious: No
  Sender: FDA-Public Use
  Company Number: US-PFIZER INC-2016487255

PATIENT
  Age: 33 Year
  Sex: Female
  Weight: 73 kg

DRUGS (6)
  1. CLARITIN [Concomitant]
     Active Substance: LORATADINE
     Indication: HYPERSENSITIVITY
     Dosage: 10 MG, 1X/DAY
  2. TRAMADOL HCL [Concomitant]
     Active Substance: TRAMADOL HYDROCHLORIDE
     Dosage: 50 MG, AS NEEDED (EVERY FOUR HOURS)
     Route: 048
     Dates: start: 20081028
  3. VICODIN [Concomitant]
     Active Substance: ACETAMINOPHEN\HYDROCODONE BITARTRATE
     Indication: PAIN
     Dosage: HYDROCODONE BITARTRATE: 5 MG; PARACETAMOL: 325 MG, AS NEEDED (TAKE 1 TO 2 TABLETS) EVERY 4 HOURS
     Route: 048
     Dates: start: 20150710
  4. LYRICA [Suspect]
     Active Substance: PREGABALIN
     Indication: COMPLEX REGIONAL PAIN SYNDROME
     Dosage: 50 MG, 1X/DAY
     Route: 048
  5. LYRICA [Suspect]
     Active Substance: PREGABALIN
     Dosage: 50 MG, 2X/DAY
     Route: 048
  6. SINGULAIR [Concomitant]
     Active Substance: MONTELUKAST SODIUM
     Indication: ASTHMA
     Dosage: 10 MG, 1X/DAY
     Route: 048

REACTIONS (1)
  - Drug effective for unapproved indication [Unknown]
